FAERS Safety Report 12119277 (Version 4)
Quarter: 2016Q1

REPORT INFORMATION
  Report Type: Report from Study
  Country: US (occurrence: US)
  Receive Date: 20160226
  Receipt Date: 20160317
  Transmission Date: 20160526
  Serious: Yes (Death, Hospitalization)
  Sender: FDA-Public Use
  Company Number: US-BAYER-2016-031410

PATIENT
  Age: 58 Year
  Sex: Female

DRUGS (1)
  1. NEXAVAR [Suspect]
     Active Substance: SORAFENIB
     Indication: ACUTE MYELOID LEUKAEMIA
     Dosage: 400 MG, BID
     Route: 048
     Dates: start: 20160207

REACTIONS (9)
  - Somnolence [Not Recovered/Not Resolved]
  - Hepatic enzyme increased [Recovering/Resolving]
  - Fungal infection [Not Recovered/Not Resolved]
  - Death [Fatal]
  - Fatigue [Not Recovered/Not Resolved]
  - Eating disorder [None]
  - Off label use [None]
  - Mouth ulceration [None]
  - Erythema [None]

NARRATIVE: CASE EVENT DATE: 20160208
